FAERS Safety Report 6899748-9 (Version None)
Quarter: 2010Q3

REPORT INFORMATION
  Report Type: 
  Country: None (occurrence: None)
  Receive Date: 20100708
  Receipt Date: 20090911
  Transmission Date: 20110219
  Serious: Yes (Other)
  Sender: FDA-Public Use
  Company Number: 2009244214

PATIENT
  Age: 36 Year
  Sex: Male
  Weight: 115 kg

DRUGS (5)
  1. CHANTIX [Suspect]
     Indication: SMOKING CESSATION THERAPY
     Dosage: 1 MG, 2X/DAY, ORAL
     Route: 048
     Dates: start: 20081011, end: 20081201
  2. LEVOTHYROXINE SODIUM [Concomitant]
  3. LIPITOR [Concomitant]
  4. TRICOR [Concomitant]
  5. GLUCOPHAGE [Concomitant]

REACTIONS (10)
  - ABNORMAL DREAMS [None]
  - AGITATION [None]
  - ANGER [None]
  - DEPRESSION [None]
  - FEELING ABNORMAL [None]
  - HOSTILITY [None]
  - INSOMNIA [None]
  - NAUSEA [None]
  - PARANOIA [None]
  - WEIGHT DECREASED [None]
